FAERS Safety Report 6440385-8 (Version None)
Quarter: 2009Q4

REPORT INFORMATION
  Report Type: 
  Country: None (occurrence: None)
  Receive Date: 20091113
  Receipt Date: 20091109
  Transmission Date: 20100525
  Serious: Yes (Death, Other)
  Sender: FDA-Public Use
  Company Number: PHHY2009SA49216

PATIENT
  Age: 18 Year
  Sex: Female

DRUGS (1)
  1. VOLTAREN [Suspect]
     Indication: ANALGESIC THERAPY

REACTIONS (3)
  - DEATH [None]
  - HEART RATE INCREASED [None]
  - RESPIRATORY RATE INCREASED [None]
